FAERS Safety Report 24905433 (Version 1)
Quarter: 2025Q1

REPORT INFORMATION
  Report Type: Spontaneous
  Country: CN (occurrence: CN)
  Receive Date: 20250130
  Receipt Date: 20250130
  Transmission Date: 20250409
  Serious: Yes (Hospitalization)
  Sender: EISAI
  Company Number: CN-Eisai-EC-2025-183044

PATIENT
  Age: 38 Year
  Sex: Female
  Weight: 83 kg

DRUGS (4)
  1. ERIBULIN [Suspect]
     Active Substance: ERIBULIN
     Indication: Breast cancer
     Route: 042
     Dates: start: 20250117
  2. ERIBULIN [Suspect]
     Active Substance: ERIBULIN
     Indication: Palliative care
  3. CARBOPLATIN [Suspect]
     Active Substance: CARBOPLATIN
     Indication: Palliative care
     Route: 041
     Dates: start: 20250117
  4. CARBOPLATIN [Suspect]
     Active Substance: CARBOPLATIN
     Indication: Breast cancer

REACTIONS (1)
  - White blood cell count decreased [Recovering/Resolving]

NARRATIVE: CASE EVENT DATE: 20250120
